FAERS Safety Report 21981566 (Version 1)
Quarter: 2023Q1

REPORT INFORMATION
  Report Type: Spontaneous
  Country: FR (occurrence: FR)
  Receive Date: 20230212
  Receipt Date: 20230212
  Transmission Date: 20230418
  Serious: Yes (Other)
  Sender: FDA-Public Use
  Company Number: None

PATIENT
  Age: 33 Year
  Sex: Male

DRUGS (2)
  1. VIMPAT [Suspect]
     Active Substance: LACOSAMIDE
     Indication: Partial seizures
     Dosage: 500 MILLIGRAM, ONCE DAILY (QD)
     Dates: start: 201903
  2. CAFFEINE\PHENOBARBITAL [Suspect]
     Active Substance: CAFFEINE\PHENOBARBITAL
     Indication: Partial seizures
     Dosage: 200 MILLIGRAM, ONCE DAILY (QD)
     Dates: start: 201903

REACTIONS (2)
  - Anorgasmia [Recovering/Resolving]
  - Libido disorder [Recovering/Resolving]

NARRATIVE: CASE EVENT DATE: 20190301
